FAERS Safety Report 17585716 (Version 1)
Quarter: 2020Q1

REPORT INFORMATION
  Report Type: Spontaneous
  Country: CA (occurrence: CA)
  Receive Date: 20200326
  Receipt Date: 20200326
  Transmission Date: 20200409
  Serious: Yes (Other)
  Sender: FDA-Public Use
  Company Number: NVSC2020CA083016

PATIENT
  Age: 31 Year
  Sex: Female
  Weight: 52 kg

DRUGS (10)
  1. STEMETIL [Suspect]
     Active Substance: PROCHLORPERAZINE
     Indication: PRODUCT USED FOR UNKNOWN INDICATION
     Route: 036
  2. HYDROMORPHONE HYDROCHLORIDE. [Suspect]
     Active Substance: HYDROMORPHONE HYDROCHLORIDE
     Indication: POST-TRAUMATIC PAIN
     Dosage: 8 MG, TID
     Route: 042
  3. FENTANYL. [Suspect]
     Active Substance: FENTANYL
     Indication: POST-TRAUMATIC PAIN
     Dosage: 125 MG, CYCLIC
     Route: 065
  4. GRAVOL [Suspect]
     Active Substance: DIMENHYDRINATE
     Indication: PRODUCT USED FOR UNKNOWN INDICATION
     Route: 042
  5. LORAZEPAM. [Suspect]
     Active Substance: LORAZEPAM
     Indication: PRODUCT USED FOR UNKNOWN INDICATION
     Dosage: 5 MG, QD
     Route: 065
  6. PANTOPRAZOLE SODIUM. [Suspect]
     Active Substance: PANTOPRAZOLE SODIUM
     Indication: PRODUCT USED FOR UNKNOWN INDICATION
     Route: 065
  7. HYDROMORPH CONTIN [Suspect]
     Active Substance: HYDROMORPHONE
     Indication: POST-TRAUMATIC PAIN
     Dosage: 24 MG, TID
     Route: 048
  8. ONDANSETRON [Suspect]
     Active Substance: ONDANSETRON
     Indication: PRODUCT USED FOR UNKNOWN INDICATION
     Route: 042
  9. ENOXAPARIN [Suspect]
     Active Substance: ENOXAPARIN
     Indication: PRODUCT USED FOR UNKNOWN INDICATION
     Route: 065
  10. AMITRIPTYLINE [Suspect]
     Active Substance: AMITRIPTYLINE
     Indication: PRODUCT USED FOR UNKNOWN INDICATION
     Dosage: 25 MG, QD
     Route: 065

REACTIONS (4)
  - Pulmonary embolism [Recovered/Resolved]
  - Premature delivery [Recovered/Resolved]
  - Drug withdrawal syndrome [Recovered/Resolved]
  - Maternal exposure during pregnancy [Recovered/Resolved]
